FAERS Safety Report 9291526 (Version 1)
Quarter: 2013Q2

REPORT INFORMATION
  Report Type: Spontaneous
  Country: US (occurrence: US)
  Receive Date: 20130515
  Receipt Date: 20130515
  Transmission Date: 20140414
  Serious: No
  Sender: FDA-Public Use
  Company Number: US-009507513-1305USA000964

PATIENT
  Sex: Male

DRUGS (2)
  1. CORICIDIN HBP COUGH AND COLD [Suspect]
     Indication: PRODUCT USED FOR UNKNOWN INDICATION
     Dosage: 8 DF, ONCE
  2. CORICIDIN HBP COUGH AND COLD [Suspect]
     Dosage: 8 DF, ONCE
     Dates: start: 2013

REACTIONS (3)
  - Tachyphrenia [Unknown]
  - Thinking abnormal [Not Recovered/Not Resolved]
  - Overdose [Unknown]
